FAERS Safety Report 6231924-0 (Version None)
Quarter: 2009Q2

REPORT INFORMATION
  Report Type: 
  Country: None (occurrence: None)
  Receive Date: 20090616
  Receipt Date: 20090610
  Transmission Date: 20091009
  Serious: Yes (Life-Threatening, Hospitalization)
  Sender: FDA-Public Use
  Company Number: GB-TEVA-198286ISR

PATIENT
  Age: 72 Year
  Sex: Male

DRUGS (5)
  1. CARBOPLATIN [Suspect]
     Dates: start: 20060201
  2. GEMCITABINE [Suspect]
     Dates: start: 20060201
  3. OMEPRAZOLE [Suspect]
     Route: 048
     Dates: start: 20060601
  4. SIMVASTATIN [Suspect]
     Indication: BLOOD CHOLESTEROL INCREASED
  5. AMOXICILLIN [Suspect]

REACTIONS (2)
  - RENAL FAILURE ACUTE [None]
  - RHABDOMYOLYSIS [None]
